FAERS Safety Report 6160100-5 (Version None)
Quarter: 2009Q2

REPORT INFORMATION
  Report Type: 
  Country: None (occurrence: None)
  Receive Date: 20090420
  Receipt Date: 20090406
  Transmission Date: 20091009
  Serious: No
  Sender: FDA-Public Use
  Company Number: ES-AVENTIS-200913777GDDC

PATIENT
  Age: 33 Year
  Sex: Female

DRUGS (1)
  1. ARAVA [Suspect]
     Indication: RHEUMATOID ARTHRITIS
     Dosage: DOSE: UNK
     Route: 048
     Dates: start: 20070201, end: 20080901

REACTIONS (1)
  - DRUG EXPOSURE DURING PREGNANCY [None]
